FAERS Safety Report 4501403-7 (Version None)
Quarter: 2004Q4

REPORT INFORMATION
  Report Type: 
  Country: None (occurrence: None)
  Receive Date: 20040928
  Receipt Date: 20040823
  Transmission Date: 20050328
  Serious: No
  Sender: FDA-Public Use
  Company Number: 04P-163-0271203-00

PATIENT
  Age: 52 Year
  Sex: Female
  Weight: 58.9676 kg

DRUGS (5)
  1. HUMIRA [Suspect]
     Indication: WEGENER'S GRANULOMATOSIS
     Dates: start: 20040803, end: 20040801
  2. PREDNISONE [Concomitant]
  3. ALENDROANTE SODIUM [Concomitant]
  4. IRBESARTAN [Concomitant]
  5. MULTI-VITAMINS [Concomitant]

REACTIONS (4)
  - EAR PAIN [None]
  - PHARYNGOLARYNGEAL PAIN [None]
  - PYREXIA [None]
  - VERTIGO [None]
